FAERS Safety Report 8502442 (Version 3)
Quarter: 2012Q4

REPORT INFORMATION
  Report Type: 
  Country: US (occurrence: US)
  Receive Date: 20120410
  Receipt Date: 20121108
  Transmission Date: 20130627
  Serious: Yes (Hospitalization)
  Sender: FDA-Public Use
  Company Number: US-INCYTE CORPORATION-2012IN000519

PATIENT
  Age: 84 None
  Sex: Male
  Weight: 79.37 kg

DRUGS (4)
  1. JAKAFI [Suspect]
     Indication: MYELOPROLIFERATIVE DISORDER
     Dosage: 20 mg, bid
     Route: 048
     Dates: start: 20120220, end: 20120319
  2. JAKAFI [Suspect]
     Dosage: 20 mg, qod
     Route: 048
     Dates: start: 20120320, end: 20120325
  3. JAKAFI [Suspect]
     Dosage: 10 mg, bid (one-half 20 mg bid dose)
     Route: 048
     Dates: start: 20120411, end: 2012
  4. JAKAFI [Suspect]
     Dosage: 20 mg, qod
     Route: 048
     Dates: start: 2012

REACTIONS (4)
  - Hospitalisation [Unknown]
  - Anaemia [Recovered/Resolved]
  - Rash macular [Not Recovered/Not Resolved]
  - Blood glucose increased [None]
